FAERS Safety Report 24709571 (Version 1)
Quarter: 2024Q4

REPORT INFORMATION
  Report Type: Spontaneous
  Country: US (occurrence: US)
  Receive Date: 20241209
  Receipt Date: 20241209
  Transmission Date: 20250114
  Serious: Yes (Hospitalization)
  Sender: NOVO NORDISK
  Company Number: US-NOVOPROD-1327688

PATIENT
  Age: 61 Year
  Sex: Female

DRUGS (1)
  1. OZEMPIC [Suspect]
     Active Substance: SEMAGLUTIDE
     Indication: Diabetes mellitus
     Dosage: UNK UNK, QW
     Route: 058
     Dates: start: 20240801, end: 20241024

REACTIONS (2)
  - Colitis [Recovered/Resolved]
  - Dehydration [Recovered/Resolved]

NARRATIVE: CASE EVENT DATE: 20240101
